FAERS Safety Report 13542964 (Version 2)
Quarter: 2017Q4

REPORT INFORMATION
  Report Type: Spontaneous
  Country: US (occurrence: US)
  Receive Date: 20170513
  Receipt Date: 20171103
  Transmission Date: 20180320
  Serious: No
  Sender: FDA-Public Use
  Company Number: US-ASTRAZENECA-2017SE49911

PATIENT
  Sex: Female
  Weight: 107.5 kg

DRUGS (2)
  1. BYDUREON [Suspect]
     Active Substance: EXENATIDE
     Route: 065
  2. BYDUREON [Suspect]
     Active Substance: EXENATIDE
     Route: 065
     Dates: start: 201703

REACTIONS (6)
  - Post procedural infection [Unknown]
  - Cataract [Unknown]
  - Insurance issue [Recovered/Resolved]
  - Device malfunction [Unknown]
  - Visual impairment [Unknown]
  - Wrong technique in device usage process [Unknown]
